FAERS Safety Report 25455625 (Version 1)
Quarter: 2025Q2

REPORT INFORMATION
  Report Type: Spontaneous
  Country: CA (occurrence: CA)
  Receive Date: 20250619
  Receipt Date: 20250619
  Transmission Date: 20250716
  Serious: Yes (Other)
  Sender: CELLTRION
  Company Number: CA-PFIZER INC-202500119318

PATIENT

DRUGS (18)
  1. INFLECTRA [Suspect]
     Active Substance: INFLIXIMAB-DYYB
     Indication: Colitis ulcerative
     Route: 042
     Dates: start: 20180704
  2. INFLECTRA [Suspect]
     Active Substance: INFLIXIMAB-DYYB
     Route: 042
     Dates: start: 20180716
  3. INFLECTRA [Suspect]
     Active Substance: INFLIXIMAB-DYYB
     Route: 042
     Dates: start: 20180817
  4. INFLECTRA [Suspect]
     Active Substance: INFLIXIMAB-DYYB
     Route: 042
     Dates: start: 20181003, end: 20190123
  5. INFLECTRA [Suspect]
     Active Substance: INFLIXIMAB-DYYB
     Route: 042
     Dates: start: 20190320, end: 20211026
  6. INFLECTRA [Suspect]
     Active Substance: INFLIXIMAB-DYYB
     Route: 042
     Dates: start: 20211208
  7. INFLECTRA [Suspect]
     Active Substance: INFLIXIMAB-DYYB
     Route: 042
     Dates: start: 20250429
  8. ASPIRIN [Concomitant]
     Active Substance: ASPIRIN
     Route: 065
  9. CALCIUM [Concomitant]
     Active Substance: CALCIUM
     Route: 065
  10. CELEBREX [Concomitant]
     Active Substance: CELECOXIB
     Indication: Arthralgia
     Route: 065
     Dates: start: 20200604
  11. CORTISONE [Concomitant]
     Active Substance: CORTISONE
     Indication: Psoriasis
     Route: 065
  12. DUTASTERIDE [Concomitant]
     Active Substance: DUTASTERIDE
     Route: 065
  13. RAMIPRIL [Concomitant]
     Active Substance: RAMIPRIL
     Route: 065
  14. SOTALOL [Concomitant]
     Active Substance: SOTALOL
     Route: 065
  15. TEMAZEPAM [Concomitant]
     Active Substance: TEMAZEPAM
     Route: 065
  16. TAMSULOSIN [Concomitant]
     Active Substance: TAMSULOSIN
     Route: 065
  17. INDAPAMIDE [Concomitant]
     Active Substance: INDAPAMIDE
     Indication: Hypertension
  18. PERINDOPRIL [Concomitant]
     Active Substance: PERINDOPRIL
     Indication: Hypertension

REACTIONS (3)
  - Pneumonia [Recovering/Resolving]
  - Sleep apnoea syndrome [Unknown]
  - Temporomandibular pain and dysfunction syndrome [Recovering/Resolving]

NARRATIVE: CASE EVENT DATE: 20250512
